FAERS Safety Report 11122709 (Version 1)
Quarter: 2015Q2

REPORT INFORMATION
  Report Type: Spontaneous
  Country: US (occurrence: US)
  Receive Date: 20150519
  Receipt Date: 20150519
  Transmission Date: 20150821
  Serious: No
  Sender: FDA-Public Use
  Company Number: US-ABBVIE-13P-163-1109723-00

PATIENT
  Age: 54 Year
  Sex: Female
  Weight: 56.75 kg

DRUGS (2)
  1. PROGESTERONE. [Suspect]
     Active Substance: PROGESTERONE
     Indication: HORMONE REPLACEMENT THERAPY
     Dosage: EVERY AM
     Route: 048
     Dates: start: 201210, end: 201305
  2. PROGESTERONE. [Suspect]
     Active Substance: PROGESTERONE
     Dosage: EVERY AM
     Route: 048
     Dates: start: 201305, end: 20130605

REACTIONS (8)
  - Throat irritation [Recovering/Resolving]
  - Coeliac disease [Unknown]
  - Rhinorrhoea [Recovering/Resolving]
  - Swelling [Recovering/Resolving]
  - Ear swelling [Recovering/Resolving]
  - Lacrimation increased [Recovering/Resolving]
  - Pharyngeal oedema [Recovering/Resolving]
  - Eye pruritus [Recovering/Resolving]

NARRATIVE: CASE EVENT DATE: 201210
